FAERS Safety Report 9709074 (Version 2)
Quarter: 2013Q4

REPORT INFORMATION
  Report Type: Spontaneous
  Country: US (occurrence: US)
  Receive Date: 20131125
  Receipt Date: 20131205
  Transmission Date: 20140711
  Serious: No
  Sender: FDA-Public Use
  Company Number: US-009507513-1311USA008510

PATIENT
  Age: 27 Year
  Sex: Female
  Weight: 107.3 kg

DRUGS (2)
  1. IMPLANON [Suspect]
     Indication: CONTRACEPTION
     Dosage: UNK
     Route: 059
     Dates: start: 20070725, end: 20100407
  2. NORVASC [Concomitant]

REACTIONS (1)
  - Device difficult to use [Unknown]
